FAERS Safety Report 18985101 (Version 5)
Quarter: 2023Q1

REPORT INFORMATION
  Report Type: Report from Study
  Country: US (occurrence: None)
  Receive Date: 20210309
  Receipt Date: 20230315
  Transmission Date: 20230418
  Serious: Yes (Hospitalization)
  Sender: FDA-Public Use
  Company Number: US-ROCHE-2778032

PATIENT
  Age: 55 Year
  Sex: Male
  Weight: 107.2 kg

DRUGS (1)
  1. ATEZOLIZUMAB [Suspect]
     Active Substance: ATEZOLIZUMAB
     Indication: Prostate cancer metastatic
     Dosage: ON 08/FEB/2021, RECEIVED LAST DOSE OF ATEZOLIZUMAB PRIOR TO SERIOUS ADVERSE EVENT?LAST DOSE ON 08/FE
     Route: 042
     Dates: start: 20210208

REACTIONS (11)
  - Pyrexia [Recovered/Resolved]
  - Headache [Recovered/Resolved]
  - Myalgia [Recovered/Resolved]
  - Back pain [Recovered/Resolved]
  - Nausea [Recovered/Resolved]
  - Aspartate aminotransferase increased [Recovered/Resolved]
  - Alanine aminotransferase increased [Recovered/Resolved]
  - Platelet count decreased [Recovered/Resolved]
  - Tachycardia [Recovered/Resolved]
  - Lymphocyte count decreased [Recovered/Resolved]
  - Influenza like illness [Recovered/Resolved]

NARRATIVE: CASE EVENT DATE: 20210218
